FAERS Safety Report 7945126-0 (Version None)
Quarter: 2011Q4

REPORT INFORMATION
  Report Type: 
  Country: None (occurrence: None)
  Receive Date: 20111129
  Receipt Date: 20111129
  Transmission Date: 20120403
  Serious: Yes (Hospitalization)
  Sender: FDA-Public Use
  Company Number: None

PATIENT
  Age: 62 Year
  Sex: Female
  Weight: 69.399 kg

DRUGS (1)
  1. PRISTIQ [Suspect]
     Indication: MUSCULOSKELETAL CHEST PAIN
     Dosage: 50 MG
     Route: 048
     Dates: start: 20111111, end: 20111121

REACTIONS (6)
  - EXOPHTHALMOS [None]
  - HEADACHE [None]
  - FALL [None]
  - ALTERED STATE OF CONSCIOUSNESS [None]
  - BLOOD PRESSURE FLUCTUATION [None]
  - MYDRIASIS [None]
